FAERS Safety Report 4403742-7 (Version None)
Quarter: 2004Q3

REPORT INFORMATION
  Report Type: 
  Country: None (occurrence: None)
  Receive Date: 20040719
  Receipt Date: 20040702
  Transmission Date: 20050211
  Serious: Yes (Disabling)
  Sender: FDA-Public Use
  Company Number: 200300434

PATIENT
  Age: 32 Year
  Sex: Female

DRUGS (4)
  1. BOTOX [Suspect]
     Indication: SKIN WRINKLING
     Dosage: 33 UNITS PRN IM
  2. MAGNESIUM [Concomitant]
  3. CALCIUM [Concomitant]
  4. COLLAGEN [Concomitant]

REACTIONS (18)
  - ANXIETY [None]
  - ARTHROPATHY [None]
  - ASTHENIA [None]
  - CHEST PAIN [None]
  - DIZZINESS [None]
  - FEELING ABNORMAL [None]
  - HEAD DISCOMFORT [None]
  - HYPOAESTHESIA [None]
  - IMMUNE SYSTEM DISORDER [None]
  - IMPAIRED DRIVING ABILITY [None]
  - INJECTION SITE HAEMORRHAGE [None]
  - INJECTION SITE PAIN [None]
  - MUSCLE TWITCHING [None]
  - PARAESTHESIA [None]
  - SENSORY DISTURBANCE [None]
  - SOCIAL PROBLEM [None]
  - TREMOR [None]
  - VIRAL INFECTION [None]
